FAERS Safety Report 4724311-5 (Version None)
Quarter: 2005Q3

REPORT INFORMATION
  Report Type: 
  Country: None (occurrence: None)
  Receive Date: 20050722
  Receipt Date: 20050708
  Transmission Date: 20060218
  Serious: Yes (Hospitalization)
  Sender: FDA-Public Use
  Company Number: 2005S1005932

PATIENT
  Age: 54 Year
  Sex: Female

DRUGS (8)
  1. APOMORPHINE HYDROCHLORIDE (APOMORPHINE HYDROCHLORIDE) (10 MG/ML) [Suspect]
     Indication: PARKINSON'S DISEASE
     Dosage: QD; SC
     Route: 058
     Dates: start: 20050620
  2. MADOPAR LT + MADOPAR T + MADOPAR D (LEVODOPA/BENSERAZIDE HYDROCHLORIDE [Suspect]
     Indication: PARKINSON'S DISEASE
     Dosage: 750 MG; QD; PO
     Route: 048
  3. DOMPERIDONE (DOMPERIDONE) (20 MG) [Suspect]
     Indication: PROPHYLAXIS
     Dosage: 20 MG; TID; PO
     Route: 048
     Dates: start: 20050611
  4. SIFROL (PRAMIPEXOLE) (0.7 M G) [Suspect]
     Indication: PARKINSON'S DISEASE
     Dosage: 0.7 MG; TID; PO
     Route: 048
     Dates: start: 20050611
  5. ENTACAPONE [Concomitant]
  6. LEVOTHYROXINE SODIUM [Concomitant]
  7. LISINOPRIL [Concomitant]
  8. DOXEPIN HCL [Concomitant]

REACTIONS (1)
  - THROMBOCYTOPENIA [None]
